FAERS Safety Report 17470578 (Version 1)
Quarter: 2020Q1

REPORT INFORMATION
  Report Type: Spontaneous
  Country: US (occurrence: US)
  Receive Date: 20200227
  Receipt Date: 20200227
  Transmission Date: 20200409
  Serious: Yes (Hospitalization)
  Sender: FDA-Public Use
  Company Number: US-BAUSCH-BL-2020-005086

PATIENT
  Sex: Female

DRUGS (8)
  1. XANAX [Concomitant]
     Active Substance: ALPRAZOLAM
     Indication: PANIC DISORDER
     Dosage: 20 PILLS
     Dates: start: 199410
  2. XANAX [Concomitant]
     Active Substance: ALPRAZOLAM
     Dosage: 20 PILLS
     Dates: start: 201902
  3. XANAX [Concomitant]
     Active Substance: ALPRAZOLAM
     Dates: start: 2019, end: 2019
  4. TRAMADOL. [Concomitant]
     Active Substance: TRAMADOL
     Indication: HERPES ZOSTER
  5. XANAX [Concomitant]
     Active Substance: ALPRAZOLAM
  6. XANAX [Concomitant]
     Active Substance: ALPRAZOLAM
     Indication: PAIN
     Dosage: FAMILY NURSE PRACTITIONER WAS FILLING PRESCRIPTION
  7. XANAX [Concomitant]
     Active Substance: ALPRAZOLAM
     Dates: start: 2019, end: 201911
  8. ATIVAN [Suspect]
     Active Substance: LORAZEPAM
     Indication: PANIC DISORDER
     Route: 065

REACTIONS (5)
  - Condition aggravated [Not Recovered/Not Resolved]
  - Pneumonia [Not Recovered/Not Resolved]
  - Panic disorder [Not Recovered/Not Resolved]
  - Chronic obstructive pulmonary disease [Not Recovered/Not Resolved]
  - Therapy cessation [Unknown]
